FAERS Safety Report 8248277-9 (Version None)
Quarter: 2012Q1

REPORT INFORMATION
  Report Type: 
  Country: None (occurrence: None)
  Receive Date: 20120330
  Receipt Date: 20120328
  Transmission Date: 20120608
  Serious: Yes (Other)
  Sender: FDA-Public Use
  Company Number: US-BRACCO-003741

PATIENT
  Sex: Female
  Weight: 109 kg

DRUGS (47)
  1. MULTIHANCE [Suspect]
     Indication: NUCLEAR MAGNETIC RESONANCE IMAGING ABDOMINAL
     Route: 042
     Dates: start: 20050707, end: 20050707
  2. CONTRAST MEDIA [Suspect]
     Indication: NUCLEAR MAGNETIC RESONANCE IMAGING
     Dosage: STATED BY PT IN A PHYSICIAN'S NOTE; NO RADIOLOGY REPORT; NOT STATED IN PFS; UNKNOWN
     Route: 065
     Dates: start: 20070801, end: 20070801
  3. CONTRAST MEDIA [Suspect]
     Indication: NUCLEAR MAGNETIC RESONANCE IMAGING BRAIN
     Route: 065
     Dates: start: 19980706, end: 19980706
  4. PERCOCET [Concomitant]
  5. CELEBREX [Concomitant]
  6. RENAGEL [Concomitant]
  7. ZEMPLAR [Concomitant]
  8. PHOSLO [Concomitant]
  9. FLONASE [Concomitant]
  10. DIATX [Concomitant]
  11. MYCOPHENOLATE MOFETIL (CELLCEPT) [Concomitant]
     Indication: KIDNEY TRANSPLANT REJECTION
  12. PREDNISONE TAB [Concomitant]
  13. PROGRAF [Concomitant]
  14. VISIPAQUE [Concomitant]
     Indication: AORTOGRAM
     Route: 065
     Dates: start: 20050616, end: 20050616
  15. MAGNEVIST [Suspect]
     Indication: NUCLEAR MAGNETIC RESONANCE IMAGING
     Route: 065
     Dates: start: 19980824, end: 19980824
  16. MAGNEVIST [Suspect]
     Route: 065
     Dates: start: 19980824, end: 19980824
  17. SYNTHROID [Concomitant]
  18. PRILOSEC [Concomitant]
  19. TRICOR [Concomitant]
  20. PROAMATINE [Concomitant]
  21. ZOCOR [Concomitant]
  22. COLACE [Concomitant]
  23. NEPHROCAPS [Concomitant]
  24. TEMAZEPAM [Concomitant]
  25. EPOGEN [Concomitant]
  26. HOMATROPINE [Concomitant]
  27. IBUPROFEN [Concomitant]
  28. TIMOLOL MALEATE [Concomitant]
  29. PARICALCITOL [Concomitant]
  30. MULTIHANCE [Suspect]
     Indication: NUCLEAR MAGNETIC RESONANCE IMAGING
     Route: 042
     Dates: start: 20050707, end: 20050707
  31. EVISTA [Concomitant]
  32. INSULIN [Concomitant]
  33. SENSIPAR [Concomitant]
  34. HUMALOG [Concomitant]
  35. SOLIVITO N [Concomitant]
  36. IRON [Concomitant]
  37. CILOSTAZOL [Concomitant]
  38. EPOGEN [Concomitant]
  39. LEVOTHYROXINE SODIUM [Concomitant]
  40. RESTORIL [Concomitant]
  41. ASPIRIN [Concomitant]
  42. MIACALCIN [Concomitant]
  43. ZOLOFT [Concomitant]
  44. PLAVIX [Concomitant]
  45. MAGNEVIST [Suspect]
     Indication: ANGIOGRAM
     Dates: start: 20020820, end: 20020820
  46. LIPITOR [Concomitant]
  47. LORATADINE [Concomitant]

REACTIONS (1)
  - NEPHROGENIC SYSTEMIC FIBROSIS [None]
